FAERS Safety Report 11371633 (Version 1)
Quarter: 2015Q3

REPORT INFORMATION
  Report Type: Spontaneous
  Country: IT (occurrence: IT)
  Receive Date: 20150812
  Receipt Date: 20150812
  Transmission Date: 20151125
  Serious: Yes (Hospitalization)
  Sender: FDA-Public Use
  Company Number: IT-JNJFOC-20150802663

PATIENT
  Age: 93 Year
  Sex: Female

DRUGS (5)
  1. SERENASE [Suspect]
     Active Substance: HALOPERIDOL
     Indication: VASCULAR ENCEPHALOPATHY
     Route: 048
     Dates: start: 20140101
  2. ATARAX [Interacting]
     Active Substance: HYDROXYZINE\HYDROXYZINE HYDROCHLORIDE
     Indication: VASCULAR ENCEPHALOPATHY
     Route: 048
     Dates: start: 20140101
  3. PAROXETINE HYDROCHLORIDE. [Interacting]
     Active Substance: PAROXETINE HYDROCHLORIDE
     Indication: VASCULAR ENCEPHALOPATHY
     Route: 048
     Dates: start: 20150101
  4. SEROQUEL [Interacting]
     Active Substance: QUETIAPINE FUMARATE
     Indication: VASCULAR ENCEPHALOPATHY
     Route: 048
     Dates: start: 20140101
  5. TRITTICO [Interacting]
     Active Substance: TRAZODONE HYDROCHLORIDE
     Indication: VASCULAR ENCEPHALOPATHY
     Route: 048
     Dates: start: 20140101

REACTIONS (2)
  - Psychomotor retardation [Not Recovered/Not Resolved]
  - Drug interaction [Not Recovered/Not Resolved]

NARRATIVE: CASE EVENT DATE: 20150115
